FAERS Safety Report 5999536-1 (Version None)
Quarter: 2008Q4

REPORT INFORMATION
  Report Type: 
  Country: None (occurrence: None)
  Receive Date: 20081211
  Receipt Date: 20081125
  Transmission Date: 20090506
  Serious: Yes (Other)
  Sender: FDA-Public Use
  Company Number: 2008PL000271

PATIENT
  Age: 28 Year
  Sex: Female

DRUGS (1)
  1. LABETALOL HYDROCHLORIDE [Suspect]
     Indication: PREGNANCY INDUCED HYPERTENSION
     Dosage: IV
     Route: 042

REACTIONS (1)
  - RETINAL DETACHMENT [None]
